FAERS Safety Report 15762571 (Version 1)
Quarter: 2018Q4

REPORT INFORMATION
  Report Type: Spontaneous
  Country: JP (occurrence: JP)
  Receive Date: 20181226
  Receipt Date: 20181226
  Transmission Date: 20190205
  Serious: Yes (Other)
  Sender: FDA-Public Use
  Company Number: JP-PFIZER INC-2018518927

PATIENT
  Age: 63 Year
  Sex: Female

DRUGS (1)
  1. ATARAX-P [Suspect]
     Active Substance: HYDROXYZINE HYDROCHLORIDE
     Dosage: UNK
     Dates: start: 201710, end: 201710

REACTIONS (1)
  - Drug-induced liver injury [Unknown]
